FAERS Safety Report 14564145 (Version 2)
Quarter: 2019Q2

REPORT INFORMATION
  Report Type: Spontaneous
  Country: AU (occurrence: AU)
  Receive Date: 20180222
  Receipt Date: 20190523
  Transmission Date: 20190711
  Serious: Yes (Death)
  Sender: FDA-Public Use
  Company Number: AU-IGSA-SR10005860

PATIENT
  Age: 87 Year
  Sex: Female

DRUGS (6)
  1. FLEBOGAMMA DIF [Suspect]
     Active Substance: HUMAN IMMUNOGLOBULIN G
     Indication: DEMYELINATING POLYNEUROPATHY
  2. BISOPROLOL [Concomitant]
     Active Substance: BISOPROLOL
  3. FLEBOGAMMA DIF [Suspect]
     Active Substance: HUMAN IMMUNOGLOBULIN G
     Indication: GUILLAIN-BARRE SYNDROME
     Dosage: 20 G, QD
     Route: 042
     Dates: start: 20171126, end: 20171128
  4. ASPIRIN                            /00002701/ [Concomitant]
     Active Substance: ASPIRIN
  5. SPIRIVA [Concomitant]
     Active Substance: TIOTROPIUM BROMIDE MONOHYDRATE
  6. SYMBICORT [Concomitant]
     Active Substance: BUDESONIDE\FORMOTEROL FUMARATE DIHYDRATE

REACTIONS (13)
  - Acute myocardial infarction [Fatal]
  - Arrhythmia [Fatal]
  - Pulmonary embolism [Fatal]
  - Confusional state [Fatal]
  - Oxygen saturation decreased [Fatal]
  - Respiratory failure [Fatal]
  - Anxiety [Fatal]
  - Restlessness [Fatal]
  - Cardio-respiratory arrest [Fatal]
  - Productive cough [Fatal]
  - Anal incontinence [Fatal]
  - Urinary incontinence [Fatal]
  - Agitation [Fatal]

NARRATIVE: CASE EVENT DATE: 20171127
